FAERS Safety Report 15083274 (Version 1)
Quarter: 2018Q2

REPORT INFORMATION
  Report Type: Spontaneous
  Country: CA (occurrence: CA)
  Receive Date: 20180628
  Receipt Date: 20180628
  Transmission Date: 20180711
  Serious: Yes (Other)
  Sender: FDA-Public Use
  Company Number: CA-PFIZER INC-2018256317

PATIENT
  Age: 56 Year
  Sex: Male

DRUGS (2)
  1. ARAVA [Concomitant]
     Active Substance: LEFLUNOMIDE
     Dosage: UNK
     Dates: end: 201803
  2. METHOTREXATE SODIUM. [Suspect]
     Active Substance: METHOTREXATE SODIUM
     Dosage: UNK
     Dates: end: 201803

REACTIONS (7)
  - Latent tuberculosis [Unknown]
  - Interstitial lung disease [Unknown]
  - Drug ineffective [Unknown]
  - Bronchiectasis [Unknown]
  - Alanine aminotransferase increased [Unknown]
  - Palmar erythema [Unknown]
  - Emphysema [Unknown]

NARRATIVE: CASE EVENT DATE: 201803
